FAERS Safety Report 21403892 (Version 1)
Quarter: 2022Q4

REPORT INFORMATION
  Report Type: Spontaneous
  Country: GB (occurrence: GB)
  Receive Date: 20221003
  Receipt Date: 20221003
  Transmission Date: 20230112
  Serious: Yes (Other)
  Sender: FDA-Public Use
  Company Number: GB-MHRA-MED-202209261506116280-WCRSH

PATIENT
  Sex: Female

DRUGS (1)
  1. ABEMACICLIB [Suspect]
     Active Substance: ABEMACICLIB
     Indication: Adjuvant therapy
     Dosage: 150 MG, BID
     Route: 065

REACTIONS (2)
  - Sensitive skin [Not Recovered/Not Resolved]
  - Taste disorder [Not Recovered/Not Resolved]
